FAERS Safety Report 6696754-4 (Version None)
Quarter: 2010Q2

REPORT INFORMATION
  Report Type: 
  Country: None (occurrence: None)
  Receive Date: 20100426
  Receipt Date: 20100420
  Transmission Date: 20101027
  Serious: Yes (Death, Life-Threatening, Hospitalization)
  Sender: FDA-Public Use
  Company Number: GR-ELI_LILLY_AND_COMPANY-GR201004005054

PATIENT
  Sex: Male
  Weight: 52 kg

DRUGS (19)
  1. PEMETREXED [Suspect]
     Indication: NON-SMALL CELL LUNG CANCER STAGE III
     Dosage: 588 MG, ONCE EVERY 21 DAYS
     Route: 042
     Dates: start: 20090824
  2. CISPLATIN [Suspect]
     Indication: NON-SMALL CELL LUNG CANCER STAGE III
     Dosage: 88 MG, ONCE EVERY 21 DAYS
     Route: 042
     Dates: start: 20090824
  3. RADIATION [Suspect]
     Indication: NON-SMALL CELL LUNG CANCER STAGE III
     Dosage: 6600 CGY
     Dates: start: 20090824
  4. FOLIC ACID [Concomitant]
     Indication: PROPHYLAXIS
     Dates: start: 20090819, end: 20091113
  5. VITAMIN B-12 [Concomitant]
     Indication: PROPHYLAXIS
     Dates: start: 20090819, end: 20091005
  6. DEXAMETHASONE 1.5MG TAB [Concomitant]
     Indication: PROPHYLAXIS
     Dates: start: 20090823, end: 20091013
  7. DEXAMETHASONE 1.5MG TAB [Concomitant]
     Dates: start: 20091221
  8. RANITIDINE [Concomitant]
     Indication: PROPHYLAXIS
     Dates: start: 20091221
  9. CETIRIZINE HCL [Concomitant]
     Indication: PROPHYLAXIS
     Dates: start: 20091221
  10. OMEPRAZOLE [Concomitant]
     Indication: PROPHYLAXIS
     Dates: start: 20100128
  11. IRON SUCROSE [Concomitant]
     Indication: ANAEMIA
     Dates: start: 20100301
  12. ALUMINIUM HYDROXIDE W/MAGNESIUM HYDROXIDE [Concomitant]
     Dates: start: 20100128
  13. SUCRALFATE [Concomitant]
     Dates: start: 20100128
  14. IRBESARTAN + HYDROCHLOROTHIAZIDE [Concomitant]
     Indication: HYPERTENSION
     Dates: start: 20050101
  15. MATRIFEN [Concomitant]
     Indication: PAIN
     Dates: start: 20091221
  16. CODEINE PHOSPHATE AND ACETAMINOPHEN [Concomitant]
     Indication: PAIN
     Dates: start: 20091221
  17. PREGABALIN [Concomitant]
     Indication: PAIN
     Dates: start: 20100114
  18. MIRTAZAPINE [Concomitant]
     Indication: MOOD ALTERED
     Dates: start: 20100301
  19. DARBEPOETIN ALFA [Concomitant]
     Indication: ANAEMIA
     Dates: start: 20100324, end: 20100324

REACTIONS (3)
  - GASTRIC PERFORATION [None]
  - PNEUMONIA ASPIRATION [None]
  - TRACHEO-OESOPHAGEAL FISTULA [None]
